FAERS Safety Report 7369416-8 (Version None)
Quarter: 2011Q1

REPORT INFORMATION
  Report Type: 
  Country: None (occurrence: None)
  Receive Date: 20110323
  Receipt Date: 20110311
  Transmission Date: 20110831
  Serious: Yes (Other)
  Sender: FDA-Public Use
  Company Number: BR-SANOFI-AVENTIS-2011SA015304

PATIENT
  Age: 65 Year
  Sex: Male
  Weight: 90 kg

DRUGS (7)
  1. APIDRA SOLOSTAR [Suspect]
     Indication: DIABETES MELLITUS
     Dosage: 15 IU BEFORE BREAKFAST, 25 IU BEFORE LUNCH AND 20 IU BEFORE DINNER
     Route: 058
     Dates: start: 20080101
  2. CILOSTAZOL [Concomitant]
     Route: 048
  3. CRESTOR [Concomitant]
     Route: 048
  4. CLOPIDOGREL [Concomitant]
     Indication: STENT PLACEMENT
     Route: 048
  5. AMLODIPINE BESYLATE [Concomitant]
     Route: 048
  6. SOLOSTAR [Suspect]
     Indication: DIABETES MELLITUS
     Route: 058
     Dates: start: 20080101
  7. LOSARTAN POTASSIUM [Concomitant]
     Route: 048

REACTIONS (6)
  - EMBOLISM ARTERIAL [None]
  - FEELING ABNORMAL [None]
  - DIZZINESS [None]
  - VISUAL IMPAIRMENT [None]
  - HYPERGLYCAEMIA [None]
  - HEADACHE [None]
